FAERS Safety Report 20889002 (Version 2)
Quarter: 2022Q2

REPORT INFORMATION
  Report Type: Report from Study
  Country: MX (occurrence: MX)
  Receive Date: 20220530
  Receipt Date: 20220612
  Transmission Date: 20220721
  Serious: Yes (Life-Threatening)
  Sender: FDA-Public Use
  Company Number: MX-NOVARTISPH-NVSC2021MX205617

PATIENT
  Age: 46 Year
  Sex: Female
  Weight: 58 kg

DRUGS (3)
  1. COSENTYX [Suspect]
     Active Substance: SECUKINUMAB
     Indication: Ankylosing spondylitis
     Dosage: WERE 2 PENS EVERY WEEK
     Route: 058
     Dates: start: 20210205
  2. COSENTYX [Suspect]
     Active Substance: SECUKINUMAB
     Dosage: CURRENTLY 2 PENS EVERY 28 DAYS
     Route: 058
  3. COSENTYX [Suspect]
     Active Substance: SECUKINUMAB
     Dosage: 150 MG, QMO (2DF, EVERY 4 WEEKS)
     Route: 058

REACTIONS (14)
  - Platelet count abnormal [Unknown]
  - Neutrophil count increased [Unknown]
  - Tension [Unknown]
  - Osteitis [Unknown]
  - Sacroiliitis [Unknown]
  - Back pain [Not Recovered/Not Resolved]
  - Nervousness [Unknown]
  - Muscle contracture [Unknown]
  - Arthritis [Unknown]
  - Joint swelling [Unknown]
  - Headache [Not Recovered/Not Resolved]
  - Pain in extremity [Not Recovered/Not Resolved]
  - Arthralgia [Not Recovered/Not Resolved]
  - Inflammation [Unknown]

NARRATIVE: CASE EVENT DATE: 20220310
